FAERS Safety Report 6155002-4 (Version None)
Quarter: 2009Q2

REPORT INFORMATION
  Report Type: 
  Country: None (occurrence: None)
  Receive Date: 20090410
  Receipt Date: 20090331
  Transmission Date: 20091009
  Serious: Yes (Death)
  Sender: FDA-Public Use
  Company Number: GXKR2009BR04080

PATIENT
  Age: 33 Year
  Sex: Female

DRUGS (10)
  1. ZIDOVUDINE [Suspect]
     Indication: PNEUMONIA
     Dates: start: 19990901
  2. SULFAMETHOXAZOLE AND TRIMETHOPRIM [Suspect]
     Indication: ANTIFUNGAL PROPHYLAXIS
  3. RIFAMPICIN [Suspect]
     Indication: TUBERCULOSIS
     Dates: start: 20000901
  4. ISONIAZID [Suspect]
     Indication: TUBERCULOSIS
     Dates: start: 20000901
  5. LAMIVUDINE [Concomitant]
  6. INDINIVIR SULFATE [Concomitant]
  7. STAVUDINE [Concomitant]
  8. DIDANOSINE (DIDANOSINE, DIDEOXYINOSINE) [Concomitant]
  9. NELFINAVIR (NELFINAVIR) [Concomitant]
  10. PYRAZINAMIDE [Concomitant]

REACTIONS (14)
  - ANAEMIA [None]
  - BACTERIAL INFECTION [None]
  - BRONCHOPULMONARY ASPERGILLOSIS [None]
  - CANDIDIASIS [None]
  - CHEST PAIN [None]
  - GENERAL PHYSICAL HEALTH DETERIORATION [None]
  - INTERVERTEBRAL DISC DISORDER [None]
  - LEUKOPENIA [None]
  - LYMPHADENOPATHY [None]
  - NEUTROPENIA [None]
  - PYREXIA [None]
  - SINUSITIS [None]
  - TACHYPNOEA [None]
  - WEIGHT DECREASED [None]
